FAERS Safety Report 10192429 (Version 3)
Quarter: 2014Q3

REPORT INFORMATION
  Report Type: Report from Study
  Country: IE (occurrence: IE)
  Receive Date: 20140523
  Receipt Date: 20140717
  Transmission Date: 20150326
  Serious: Yes (Death, Hospitalization)
  Sender: FDA-Public Use
  Company Number: IE-BRISTOL-MYERS SQUIBB COMPANY-20195228

PATIENT
  Age: 64 Year
  Sex: Male

DRUGS (5)
  1. OXYCONTIN [Concomitant]
     Active Substance: OXYCODONE HYDROCHLORIDE
  2. PREGABALIN. [Concomitant]
     Active Substance: PREGABALIN
  3. OXYNORM [Concomitant]
     Active Substance: OXYCODONE HYDROCHLORIDE
  4. PARACETAMOL [Concomitant]
     Active Substance: ACETAMINOPHEN
  5. YERVOY [Suspect]
     Active Substance: IPILIMUMAB
     Indication: METASTATIC MALIGNANT MELANOMA
     Dosage: CYCLE 2 ON 18FEB14 ,CYCLE 3 ON 21MAR14.
     Route: 042
     Dates: start: 20140128

REACTIONS (6)
  - Diarrhoea [Unknown]
  - Gastrointestinal infection [Unknown]
  - Malignant neoplasm progression [Fatal]
  - Fatigue [Unknown]
  - Headache [Recovered/Resolved]
  - Constipation [Unknown]

NARRATIVE: CASE EVENT DATE: 20140204
